FAERS Safety Report 10976672 (Version 2)
Quarter: 2015Q2

REPORT INFORMATION
  Report Type: Spontaneous
  Country: US (occurrence: US)
  Receive Date: 20150401
  Receipt Date: 20150525
  Transmission Date: 20150821
  Serious: No
  Sender: FDA-Public Use
  Company Number: US-JNJFOC-20131016005

PATIENT
  Sex: Male

DRUGS (1)
  1. RISPERIDONE. [Suspect]
     Active Substance: RISPERIDONE
     Indication: PRODUCT USED FOR UNKNOWN INDICATION
     Route: 065

REACTIONS (31)
  - Eye movement disorder [Unknown]
  - Chills [Unknown]
  - Influenza [Unknown]
  - Feeling of body temperature change [Unknown]
  - Dry mouth [Unknown]
  - Increased appetite [Unknown]
  - Dysphagia [Unknown]
  - Constipation [Unknown]
  - Somnolence [Unknown]
  - Sleep disorder [Unknown]
  - Abdominal pain upper [Unknown]
  - Oropharyngeal pain [Unknown]
  - Gynaecomastia [Unknown]
  - Anxiety [Unknown]
  - Erectile dysfunction [Unknown]
  - Headache [Unknown]
  - Restlessness [Unknown]
  - Nasopharyngitis [Unknown]
  - Fatigue [Unknown]
  - Rash [Unknown]
  - Dyskinesia [Unknown]
  - Epistaxis [Unknown]
  - Pyrexia [Unknown]
  - Oral mucosal discolouration [Unknown]
  - Weight increased [Unknown]
  - Nausea [Unknown]
  - Cough [Unknown]
  - Trismus [Unknown]
  - Pain [Unknown]
  - Dizziness [Unknown]
  - Stomatitis [Unknown]
